FAERS Safety Report 17958415 (Version 1)
Quarter: 2020Q2

REPORT INFORMATION
  Report Type: Spontaneous
  Country: US (occurrence: US)
  Receive Date: 20200629
  Receipt Date: 20200629
  Transmission Date: 20200714
  Serious: Yes (Death, Hospitalization, Other)
  Sender: FDA-Public Use
  Company Number: US-PFIZER INC-2020245892

PATIENT
  Age: 54 Year
  Sex: Male

DRUGS (4)
  1. SULFAMETHOXAZOLE/TRIMETHOPRIM [Suspect]
     Active Substance: SULFAMETHOXAZOLE\TRIMETHOPRIM
     Indication: PNEUMOCYSTIS JIROVECII PNEUMONIA
     Dosage: 960 MG, DAILY (160 MG OF TRIMETHOPRIM, AND 800 MG OF SULFAMETHOXAZOLE)
  2. FLUCONAZOLE. [Suspect]
     Active Substance: FLUCONAZOLE
     Indication: PNEUMOCYSTIS JIROVECII PNEUMONIA
     Dosage: 100 MG, DAILY
  3. RIFABUTIN. [Suspect]
     Active Substance: RIFABUTIN
     Indication: PNEUMOCYSTIS JIROVECII PNEUMONIA
     Dosage: 300 MG, DAILY
  4. ZIDOVUDINE. [Suspect]
     Active Substance: ZIDOVUDINE
     Indication: PNEUMOCYSTIS JIROVECII PNEUMONIA
     Dosage: 100 MG, 3X/DAY

REACTIONS (3)
  - Pseudomembranous colitis [Fatal]
  - Metabolic acidosis [Fatal]
  - Hypovolaemic shock [Fatal]
